FAERS Safety Report 6600709-5 (Version None)
Quarter: 2010Q1

REPORT INFORMATION
  Report Type: 
  Country: None (occurrence: None)
  Receive Date: 20100223
  Receipt Date: 20100223
  Transmission Date: 20100710
  Serious: Yes (Life-Threatening, Disabling, Other)
  Sender: FDA-Public Use
  Company Number: None

PATIENT
  Age: 59 Year
  Sex: Male
  Weight: 117.9352 kg

DRUGS (1)
  1. SPIRONOLACTONE [Suspect]
     Indication: FIBROMYALGIA
     Dosage: 50MG TWICE DAILY MOUTH
     Route: 048
     Dates: start: 20091108

REACTIONS (2)
  - BREAST ENLARGEMENT [None]
  - BREAST PAIN [None]
